FAERS Safety Report 9006719 (Version 1)
Quarter: 2013Q1

REPORT INFORMATION
  Report Type: Spontaneous
  Country: US (occurrence: US)
  Receive Date: 20130110
  Receipt Date: 20130110
  Transmission Date: 20140127
  Serious: No
  Sender: FDA-Public Use
  Company Number: US-TEVA-378818USA

PATIENT
  Age: 33 Year
  Sex: Female
  Weight: 56.75 kg

DRUGS (2)
  1. PROAIR HFA [Suspect]
     Indication: ASTHMA
     Route: 055
     Dates: start: 20121204, end: 20121204
  2. PRENATAL VITAMINS [Concomitant]
     Indication: SUPPLEMENTATION THERAPY
     Dosage: 1 TABLET DAILY;
     Route: 048

REACTIONS (2)
  - Cough [Recovered/Resolved]
  - Exposure during pregnancy [Unknown]
